FAERS Safety Report 5846877-4 (Version None)
Quarter: 2008Q3

REPORT INFORMATION
  Report Type: 
  Country: None (occurrence: None)
  Receive Date: 20080815
  Receipt Date: 20080807
  Transmission Date: 20090109
  Serious: Yes (Other)
  Sender: FDA-Public Use
  Company Number: US-ASTRAZENECA-2008UW16135

PATIENT
  Age: 57 Year
  Sex: Female
  Weight: 88.5 kg

DRUGS (6)
  1. ARIMIDEX [Suspect]
     Indication: BREAST CANCER
     Route: 048
     Dates: start: 20030101
  2. ZOMETA [Concomitant]
  3. ARMTHROID [Concomitant]
  4. WELLBUTRIN [Concomitant]
  5. NEURONTIN [Concomitant]
  6. VITAMIN TAB [Concomitant]

REACTIONS (4)
  - ARTHRALGIA [None]
  - HOT FLUSH [None]
  - MUSCLE SPASMS [None]
  - NEOPLASM [None]
